FAERS Safety Report 5781050-X (Version None)
Quarter: 2008Q2

REPORT INFORMATION
  Report Type: 
  Country: None (occurrence: None)
  Receive Date: 20080618
  Receipt Date: 20080609
  Transmission Date: 20081010
  Serious: Yes (Hospitalization)
  Sender: FDA-Public Use
  Company Number: 2008-GWUS-0401

PATIENT
  Age: 82 Year
  Sex: Female

DRUGS (2)
  1. MAXAIR [Suspect]
     Indication: CHRONIC OBSTRUCTIVE PULMONARY DISEASE
     Dosage: 200 MCG RESPIRATORY (INHALATION)
     Route: 055
     Dates: start: 20080531, end: 20080531
  2. COUMADIN [Concomitant]

REACTIONS (2)
  - DIZZINESS [None]
  - PARAESTHESIA [None]
